FAERS Safety Report 4505189-1 (Version None)
Quarter: 2004Q4

REPORT INFORMATION
  Report Type: 
  Country: None (occurrence: None)
  Receive Date: 20041118
  Receipt Date: 20041118
  Transmission Date: 20050328
  Serious: Yes (Other)
  Sender: FDA-Public Use
  Company Number: None

PATIENT
  Age: 11 Year
  Sex: Male

DRUGS (2)
  1. SOLU-MEDROL [Suspect]
     Indication: ASTHMA
     Dosage: EVERY 6 HOURS INTRAVENOUS
     Route: 042
     Dates: start: 20041026, end: 20041027
  2. SOLU-MEDROL [Suspect]
     Indication: CONDITION AGGRAVATED
     Dosage: EVERY 6 HOURS INTRAVENOUS
     Route: 042
     Dates: start: 20041026, end: 20041027

REACTIONS (4)
  - FLUSHING [None]
  - HYPOVENTILATION [None]
  - RESPIRATORY RATE INCREASED [None]
  - THROAT IRRITATION [None]
